FAERS Safety Report 19734613 (Version 2)
Quarter: 2023Q1

REPORT INFORMATION
  Report Type: Spontaneous
  Country: FR (occurrence: FR)
  Receive Date: 20210823
  Receipt Date: 20230306
  Transmission Date: 20230417
  Serious: Yes (Hospitalization)
  Sender: FDA-Public Use
  Company Number: None

PATIENT
  Age: 93 Year
  Sex: Male

DRUGS (5)
  1. MIRTAZAPINE [Suspect]
     Active Substance: MIRTAZAPINE
     Indication: Depression
     Dosage: 15 MILLIGRAM, QD
     Route: 048
     Dates: start: 20210715
  2. COMIRNATY [Suspect]
     Active Substance: TOZINAMERAN
     Indication: COVID-19 immunisation
     Dosage: 1 DOSAGE FORM, ONCE, COVID-19 MRNA VACCINE (MODIFIED NUCLEOSIDE)
     Route: 030
     Dates: start: 20210628, end: 20210628
  3. RAMIPRIL [Concomitant]
     Active Substance: RAMIPRIL
     Dosage: 25 MILLIGRAM, QD
  4. BISOPROLOL [Concomitant]
     Active Substance: BISOPROLOL
     Dosage: 1 DOSAGE FORM, QD, FORMULATION: FILM-COATED SCORED TABLET
  5. ELIQUIS [Concomitant]
     Active Substance: APIXABAN
     Dosage: 1 DOSAGE FORM, QD

REACTIONS (1)
  - Viral infection [Recovered/Resolved]

NARRATIVE: CASE EVENT DATE: 20210719
